FAERS Safety Report 24450711 (Version 1)
Quarter: 2024Q4

REPORT INFORMATION
  Report Type: Spontaneous
  Country: US (occurrence: None)
  Receive Date: 20241017
  Receipt Date: 20241017
  Transmission Date: 20250115
  Serious: Yes (Other)
  Sender: Public
  Company Number: None

PATIENT
  Age: 28 Year
  Sex: Female

DRUGS (1)
  1. MICONAZOLE NITRATE [Suspect]
     Active Substance: MICONAZOLE NITRATE
     Indication: Fungal infection
     Dosage: OTHER STRENGTH : MG/%;?OTHER QUANTITY : 1 SUPPOSITORY(IES);?OTHER FREQUENCY : MORNING OR NIGHT;?
     Route: 067

REACTIONS (3)
  - Application site pain [None]
  - Application site pruritus [None]
  - Lacrimation increased [None]
